FAERS Safety Report 25106522 (Version 1)
Quarter: 2025Q1

REPORT INFORMATION
  Report Type: Spontaneous
  Country: TH (occurrence: TH)
  Receive Date: 20250321
  Receipt Date: 20250321
  Transmission Date: 20250409
  Serious: Yes (Other)
  Sender: BAYER HEALTHCARE PHARMACEUTICALS INC.
  Company Number: TH-BAYER-2025A036446

PATIENT
  Age: 31 Year
  Sex: Female

DRUGS (1)
  1. YASMIN [Suspect]
     Active Substance: DROSPIRENONE\ETHINYL ESTRADIOL
     Indication: Acne
     Route: 048

REACTIONS (2)
  - Loss of consciousness [Recovered/Resolved]
  - Pulmonary embolism [None]

NARRATIVE: CASE EVENT DATE: 20250107
